FAERS Safety Report 8577346-9 (Version None)
Quarter: 2012Q3

REPORT INFORMATION
  Report Type: 
  Country: None (occurrence: None)
  Receive Date: 20120807
  Receipt Date: 20120727
  Transmission Date: 20120928
  Serious: Yes (Other)
  Sender: FDA-Public Use
  Company Number: CHPA2012US015587

PATIENT
  Age: 70 Year
  Sex: Female

DRUGS (2)
  1. WARFARIN SODIUM [Concomitant]
     Dosage: UNK, UNK
  2. EXCEDRIN EXTRA STRENGTH TABLETS [Suspect]
     Indication: OSTEOARTHRITIS
     Dosage: 2 TO 3 DF, PRN
     Route: 048

REACTIONS (4)
  - INCORRECT DOSE ADMINISTERED [None]
  - EXPIRED DRUG ADMINISTERED [None]
  - OSTEOARTHRITIS [None]
  - THROMBOSIS [None]
